FAERS Safety Report 9553852 (Version 1)
Quarter: 2013Q3

REPORT INFORMATION
  Report Type: Spontaneous
  Country: US (occurrence: None)
  Receive Date: 20130913
  Receipt Date: 20130913
  Transmission Date: 20140515
  Serious: Yes (Other)
  Sender: FDA-Public Use
  Company Number: 1000045724

PATIENT
  Age: 68 Year
  Sex: Female
  Weight: 43.91 kg

DRUGS (17)
  1. DALIRESP (ROFLUMILAST) (500 MICROGRAM, TABLETS) [Suspect]
     Indication: CHRONIC OBSTRUCTIVE PULMONARY DISEASE
     Route: 048
     Dates: start: 20110816
  2. RECLAST (ZOLEDRONIC ACID) [Concomitant]
  3. ULTRACET [Concomitant]
  4. FLEXERIL (CYCLOBENZAPRINE) [Concomitant]
  5. VENTOLIN HFA (SALBUTAMOL SULFATE) [Concomitant]
  6. HYDROCORTISONE [Concomitant]
  7. RANITIDINE [Concomitant]
  8. NASONEX (MOMETASONE FUROATE) [Concomitant]
  9. PATANOL (OLOPATADINE HYDROCHLORIDE) [Concomitant]
  10. GUAIFENESIN [Concomitant]
  11. DUONEB (COMBIVENT) [Concomitant]
  12. ALBUTEROL SULFATE (SALBUTAMOL SULFATE) [Concomitant]
  13. AYR SALINE (SODIUM CHLORIDE) [Concomitant]
  14. VIT D (ERGOCALCIFEROL) [Concomitant]
  15. CALCIUM [Concomitant]
  16. MIRALAX (POLYETHYLENE GLYCOL) [Concomitant]
  17. SENNA S (COLOXYL WITH SENNA) [Concomitant]

REACTIONS (1)
  - Lung neoplasm malignant [None]
